FAERS Safety Report 9349544 (Version 1)
Quarter: 2013Q2

REPORT INFORMATION
  Report Type: Spontaneous
  Country: JP (occurrence: JP)
  Receive Date: 20130614
  Receipt Date: 20130614
  Transmission Date: 20140414
  Serious: Yes (Other)
  Sender: FDA-Public Use
  Company Number: JP-GLAXOSMITHKLINE-B0896045A

PATIENT
  Age: 4 Decade
  Sex: 0

DRUGS (2)
  1. VOTRIENT [Suspect]
     Indication: SOFT TISSUE CANCER
     Dosage: 800MG PER DAY
     Route: 048
     Dates: start: 20121019, end: 20121024
  2. UNKNOWN DRUG [Concomitant]
     Route: 065
     Dates: start: 201201

REACTIONS (3)
  - Pancytopenia [Not Recovered/Not Resolved]
  - Platelet count decreased [Not Recovered/Not Resolved]
  - Faeces pale [Recovered/Resolved]
